FAERS Safety Report 6657249-7 (Version None)
Quarter: 2010Q1

REPORT INFORMATION
  Report Type: 
  Country: None (occurrence: None)
  Receive Date: 20100330
  Receipt Date: 20100323
  Transmission Date: 20100710
  Serious: Yes (Other)
  Sender: FDA-Public Use
  Company Number: IT-ASTRAZENECA-2010SE12967

PATIENT
  Age: 18923 Day
  Sex: Female

DRUGS (1)
  1. ARIMIDEX [Suspect]
     Indication: BREAST CANCER
     Route: 048
     Dates: start: 20071010, end: 20071010

REACTIONS (2)
  - PSYCHOMOTOR HYPERACTIVITY [None]
  - TACHYCARDIA [None]
